FAERS Safety Report 8020939-8 (Version None)
Quarter: 2011Q4

REPORT INFORMATION
  Report Type: 
  Country: None (occurrence: None)
  Receive Date: 20111228
  Receipt Date: 20111219
  Transmission Date: 20120403
  Serious: Yes (Hospitalization)
  Sender: FDA-Public Use
  Company Number: 1144560

PATIENT
  Age: 32 Year
  Sex: Male
  Weight: 27.6694 kg

DRUGS (16)
  1. (PABRINEX) [Concomitant]
  2. (MAGNESIUM) [Concomitant]
  3. VALPROATE SODIUM [Suspect]
     Indication: PRODUCT USED FOR UNKNOWN INDICATION
     Dosage: 300 MG MILLIGRAM(S), 1 DAY, INTRAVENOUS
     Route: 042
     Dates: start: 20111031, end: 20111103
  4. VANCOMYCIN HCL [Suspect]
     Indication: PRODUCT USED FOR UNKNOWN INDICATION
     Dosage: 1000 MG MILLIGRAM), 1 DAY, INTRAVENOUS DRIP
     Route: 041
     Dates: end: 20111107
  5. LEVETIRACETAM [Suspect]
     Indication: CONVULSION
     Dosage: 250 MG MILLIGRAM(S), 1 DAY, ORAL
     Route: 048
     Dates: start: 20111103, end: 20111103
  6. METOCLOPRAMIDE [Concomitant]
  7. (PRONTODERM) [Concomitant]
  8. ALFENTANIL [Concomitant]
  9. MAGNESIUM SULFATE [Concomitant]
  10. (DOCUSATE) [Concomitant]
  11. OMEPRAZOLE [Concomitant]
  12. FUROSEMIDE [Concomitant]
  13. PROPOFOL [Concomitant]
  14. (SENNA) [Concomitant]
  15. MIDAZOLAM [Concomitant]
  16. (CHLORHEXADINE) [Concomitant]

REACTIONS (3)
  - HEPATITIS [None]
  - DRUG RASH WITH EOSINOPHILIA AND SYSTEMIC SYMPTOMS [None]
  - TUBULOINTERSTITIAL NEPHRITIS [None]
